FAERS Safety Report 15844718 (Version 1)
Quarter: 2019Q1

REPORT INFORMATION
  Report Type: Spontaneous
  Country: JP (occurrence: JP)
  Receive Date: 20190118
  Receipt Date: 20190118
  Transmission Date: 20190417
  Serious: Yes (Hospitalization)
  Sender: FDA-Public Use
  Company Number: JP-ALLERGAN-1902630US

PATIENT
  Age: 48 Year
  Sex: Male

DRUGS (1)
  1. ACAMPROSATE CALCIUM - BP [Suspect]
     Active Substance: ACAMPROSATE CALCIUM
     Indication: PRODUCT USED FOR UNKNOWN INDICATION
     Dosage: 1998 MG, UNK
     Route: 048

REACTIONS (1)
  - Cranial nerve disorder [Unknown]
